FAERS Safety Report 9565513 (Version 2)
Quarter: 2013Q4

REPORT INFORMATION
  Report Type: Report from Study
  Country: FR (occurrence: FR)
  Receive Date: 20130930
  Receipt Date: 20131108
  Transmission Date: 20140711
  Serious: Yes (Hospitalization)
  Sender: FDA-Public Use
  Company Number: FR-ROCHE-1277699

PATIENT
  Age: 53 Year
  Sex: Female
  Weight: 84 kg

DRUGS (11)
  1. TRASTUZUMAB [Suspect]
     Indication: HER-2 POSITIVE BREAST CANCER
     Dosage: LOADING DOSE. LAST DOSE PRIOR TO SAE WAS 01/AUG/2013
     Route: 042
     Dates: start: 20121011, end: 20121011
  2. TRASTUZUMAB [Suspect]
     Dosage: MAINTENANCE DOSE
     Route: 042
     Dates: start: 20121101
  3. CELEBREX [Concomitant]
     Route: 065
     Dates: start: 2003
  4. TRAMADOL [Concomitant]
     Dosage: PRN
     Route: 065
     Dates: start: 20130307
  5. OGAST [Concomitant]
     Route: 065
     Dates: start: 2003
  6. VELITEN [Concomitant]
     Route: 065
     Dates: start: 1993
  7. LETROZOLE [Concomitant]
     Route: 065
     Dates: start: 20130221, end: 20130617
  8. LETROZOLE [Concomitant]
     Route: 065
     Dates: start: 20130822
  9. EXEMESTANE [Concomitant]
     Route: 065
     Dates: start: 20130717, end: 20130801
  10. PERTUZUMAB [Suspect]
     Indication: HER-2 POSITIVE BREAST CANCER
     Dosage: LAST DOSE PRIOR TO SAE WAS 01/AUG/2013. LOADING DOSE
     Route: 042
     Dates: start: 20121011, end: 20121011
  11. PERTUZUMAB [Suspect]
     Dosage: MAINTENANCE DOSE
     Route: 042
     Dates: start: 20121101

REACTIONS (1)
  - Abdominal pain upper [Recovered/Resolved]
